FAERS Safety Report 13521847 (Version 1)
Quarter: 2017Q2

REPORT INFORMATION
  Report Type: Spontaneous
  Country: SE (occurrence: SE)
  Receive Date: 20170508
  Receipt Date: 20170508
  Transmission Date: 20170830
  Serious: Yes (Hospitalization)
  Sender: FDA-Public Use
  Company Number: SE-TEVA-763996ACC

PATIENT
  Age: 36 Year
  Sex: Female

DRUGS (5)
  1. MIRTAZAPIN ACTAVIS [Suspect]
     Active Substance: MIRTAZAPINE
     Dosage: 150 SINGLE DOSE, UNS
     Route: 048
     Dates: start: 20150803, end: 20150803
  2. PROMETHAZINE [Concomitant]
     Active Substance: PROMETHAZINE\PROMETHAZINE HYDROCHLORIDE
  3. VOXRA [Suspect]
     Active Substance: BUPROPION HYDROCHLORIDE
     Dosage: 3000 SINGELDOS, UNS
     Route: 048
     Dates: start: 20150803, end: 20150803
  4. ANTABUS [Concomitant]
     Active Substance: DISULFIRAM
  5. INDERAL [Concomitant]
     Active Substance: PROPRANOLOL HYDROCHLORIDE

REACTIONS (1)
  - Suicide attempt [Recovered/Resolved]

NARRATIVE: CASE EVENT DATE: 20150803
